FAERS Safety Report 13650370 (Version 2)
Quarter: 2017Q3

REPORT INFORMATION
  Report Type: Spontaneous
  Country: JP (occurrence: JP)
  Receive Date: 20170614
  Receipt Date: 20170717
  Transmission Date: 20171127
  Serious: Yes (Death)
  Sender: FDA-Public Use
  Company Number: JP-ROCHE-1950238

PATIENT
  Age: 85 Year
  Sex: Female

DRUGS (7)
  1. PREDNISOLONE. [Concomitant]
     Active Substance: PREDNISOLONE
     Route: 048
  2. RHEUMATREX [Concomitant]
     Active Substance: METHOTREXATE SODIUM
     Route: 048
  3. ACTEMRA [Suspect]
     Active Substance: TOCILIZUMAB
     Indication: RHEUMATOID ARTHRITIS
     Route: 041
     Dates: start: 20160808, end: 20170424
  4. RIMATIL [Concomitant]
     Active Substance: BUCILLAMINE
     Route: 048
  5. REBAMIPIDE [Concomitant]
     Active Substance: REBAMIPIDE
     Route: 048
  6. KETOPROFEN. [Concomitant]
     Active Substance: KETOPROFEN
     Route: 061
  7. MOBIC [Concomitant]
     Active Substance: MELOXICAM
     Route: 048

REACTIONS (3)
  - Lymphoma [Fatal]
  - Pneumonia [Fatal]
  - Sepsis [Fatal]

NARRATIVE: CASE EVENT DATE: 20170504
